FAERS Safety Report 5808409-6 (Version None)
Quarter: 2008Q3

REPORT INFORMATION
  Report Type: 
  Country: None (occurrence: None)
  Receive Date: 20080714
  Receipt Date: 20080704
  Transmission Date: 20090109
  Serious: Yes (Other)
  Sender: FDA-Public Use
  Company Number: PHBS2008TR05011

PATIENT
  Age: 7 Year
  Sex: Male

DRUGS (1)
  1. CARBAMAZEPINE [Suspect]
     Indication: EPILEPSY
     Dosage: 10 MG/KG, DAY

REACTIONS (4)
  - APATHY [None]
  - ELECTROENCEPHALOGRAM ABNORMAL [None]
  - PERFORMANCE STATUS DECREASED [None]
  - STATUS EPILEPTICUS [None]
